FAERS Safety Report 8900032 (Version 1)
Quarter: 2012Q4

REPORT INFORMATION
  Report Type: 
  Country: IL (occurrence: IL)
  Receive Date: 20121109
  Receipt Date: 20121109
  Transmission Date: 20130627
  Serious: Yes (Life-Threatening, Hospitalization)
  Sender: FDA-Public Use
  Company Number: PHHO2012IL003232

PATIENT
  Age: 65 Year
  Sex: Female
  Weight: 72 kg

DRUGS (11)
  1. AFINITOR [Suspect]
     Indication: BREAST CANCER METASTATIC
     Dosage: 10 mg, UNK
     Route: 048
     Dates: start: 20111113, end: 20120220
  2. CGS 20267 [Suspect]
     Indication: BREAST CANCER METASTATIC
     Dosage: 2.5 mg, UNK
     Route: 048
     Dates: start: 20111113, end: 20120220
  3. TRITACE [Concomitant]
     Indication: HYPERTENSION
     Dosage: 1.25 mg, UNK
     Route: 048
     Dates: start: 199704, end: 20120220
  4. ASPIRIN [Concomitant]
     Indication: PROPHYLAXIS
     Dosage: 500 mg, UNK
     Route: 048
     Dates: start: 2010, end: 20120220
  5. CIPRALEX [Concomitant]
     Indication: DEPRESSION
     Dosage: 10 mg, UNK
     Route: 048
     Dates: start: 2011, end: 20120220
  6. DISOTHIAZIDE [Concomitant]
     Indication: HYPERTENSION
     Dosage: 15 mg, UNK
     Route: 048
     Dates: start: 199704, end: 20120220
  7. LYRICA [Concomitant]
     Indication: NEUROTOXICITY
     Dosage: 100 mg, UNK
     Route: 048
     Dates: start: 2010, end: 20120220
  8. CALTRATE WITH VITAMIN D [Concomitant]
     Indication: PROPHYLAXIS
     Dosage: 0.6 g, UNK
     Route: 048
     Dates: start: 2010, end: 20120220
  9. ETOPAN [Concomitant]
     Indication: PAIN
     Dosage: 20 mg, UNK
     Route: 048
     Dates: start: 20120103, end: 20120220
  10. PAMIDRONATE DISODIUM [Concomitant]
     Indication: METASTASIS
     Dosage: 90 mg, UNK
     Route: 048
     Dates: start: 20111127, end: 201201
  11. NORMALOL [Concomitant]
     Indication: HYPERTENSION
     Dosage: 25 mg, UNK
     Route: 048
     Dates: start: 199704, end: 20120220

REACTIONS (3)
  - Sepsis [Recovered/Resolved]
  - Pneumonia [Recovered/Resolved]
  - Renal failure acute [Recovered/Resolved with Sequelae]
